FAERS Safety Report 24335905 (Version 1)
Quarter: 2024Q3

REPORT INFORMATION
  Report Type: Report from Study
  Country: ID (occurrence: ID)
  Receive Date: 20240919
  Receipt Date: 20240919
  Transmission Date: 20241016
  Serious: No
  Sender: ROCHE
  Company Number: ID-ROCHE-3427134

PATIENT
  Age: 35 Year
  Sex: Female

DRUGS (16)
  1. OSELTAMIVIR [Suspect]
     Active Substance: OSELTAMIVIR
     Indication: COVID-19
     Route: 065
  2. SODIUM CHLORIDE [Concomitant]
     Active Substance: SODIUM CHLORIDE
  3. LANSOPRAZOLE [Concomitant]
     Active Substance: LANSOPRAZOLE
  4. CLOBAZAM [Concomitant]
     Active Substance: CLOBAZAM
  5. SERTRALINE [Concomitant]
     Active Substance: SERTRALINE HYDROCHLORIDE
  6. SUKRALFAT [Concomitant]
  7. ACETYLCYSTEINE [Concomitant]
     Active Substance: ACETYLCYSTEINE
  8. ZINC [Concomitant]
     Active Substance: ZINC
  9. AZITROMISIN [Concomitant]
  10. ATIVAN [Concomitant]
     Active Substance: LORAZEPAM
  11. VITAMIN C [Concomitant]
     Active Substance: ASCORBIC ACID
  12. FAVIPIRAVIR [Concomitant]
     Active Substance: FAVIPIRAVIR
  13. BISOPROLOL [Concomitant]
     Active Substance: BISOPROLOL\BISOPROLOL FUMARATE
  14. BISOPROLOL FUMARATE [Concomitant]
     Active Substance: BISOPROLOL FUMARATE
  15. POVIDONE-IODINE [Concomitant]
     Active Substance: POVIDONE-IODINE
  16. DOMPERIDONE [Concomitant]
     Active Substance: DOMPERIDONE

REACTIONS (3)
  - Off label use [Unknown]
  - Fatigue [Unknown]
  - Pain [Unknown]
